FAERS Safety Report 6202245-7 (Version None)
Quarter: 2009Q2

REPORT INFORMATION
  Report Type: 
  Country: None (occurrence: None)
  Receive Date: 20090526
  Receipt Date: 20090512
  Transmission Date: 20091009
  Serious: Yes (Disabling)
  Sender: FDA-Public Use
  Company Number: US-MERCK-0903USA01376

PATIENT
  Age: 52 Year
  Sex: Female

DRUGS (2)
  1. FOSAMAX [Suspect]
     Indication: OSTEOPENIA
     Route: 048
     Dates: start: 20030101
  2. FOSAMAX [Suspect]
     Route: 048
     Dates: start: 19960601, end: 20070306

REACTIONS (11)
  - ABSCESS [None]
  - ADVERSE EVENT [None]
  - BLOOD CHOLESTEROL INCREASED [None]
  - CANDIDIASIS [None]
  - FOOT FRACTURE [None]
  - ORAL INFECTION [None]
  - ORAL TORUS [None]
  - OSTEONECROSIS [None]
  - ROAD TRAFFIC ACCIDENT [None]
  - TONGUE DISCOLOURATION [None]
  - TRAUMATIC ULCER [None]
